FAERS Safety Report 9207127 (Version 1)
Quarter: 2013Q1

REPORT INFORMATION
  Report Type: Spontaneous
  Country: US (occurrence: None)
  Receive Date: 20120731
  Receipt Date: 20120731
  Transmission Date: 20140127
  Serious: No
  Sender: FDA-Public Use
  Company Number: 2012MZ000300

PATIENT
  Age: 39 Year
  Sex: Male
  Weight: 79.38 kg

DRUGS (6)
  1. XEOMIN [Suspect]
     Indication: SKIN WRINKLING
     Dates: start: 20120106, end: 20120106
  2. XEOMIN [Suspect]
     Indication: SKIN WRINKLING
     Dates: start: 20120106, end: 20120106
  3. XEOMIN [Suspect]
     Dates: start: 20120106, end: 20120106
  4. TRUVADA [Concomitant]
  5. ACICLOVIR [Concomitant]
  6. VATAMINS NOS [Concomitant]

REACTIONS (2)
  - Therapeutic response decreased [None]
  - Off label use [None]
